FAERS Safety Report 8433118-7 (Version None)
Quarter: 2012Q2

REPORT INFORMATION
  Report Type: 
  Country: None (occurrence: None)
  Receive Date: 20120607
  Receipt Date: 20120601
  Transmission Date: 20120825
  Serious: Yes (Hospitalization, Other)
  Sender: FDA-Public Use
  Company Number: AUR-APL-2012-02395

PATIENT
  Age: 56 Year
  Sex: Female
  Weight: 54 kg

DRUGS (12)
  1. SERTRALINE HYDROCHLORIDE [Concomitant]
  2. VITAMIN D [Concomitant]
  3. VITAMIN B12 [Concomitant]
  4. RISPERIDONE [Suspect]
     Indication: SLEEP DISORDER
     Dosage: 0.5 MG (0.5 MG, 1 IN 1 D), UNKNOWN
     Dates: start: 20120101
  5. TRAMADOL HCL [Concomitant]
  6. LEVOXYL [Concomitant]
  7. NICOTINE [Concomitant]
  8. SYNTHROID [Concomitant]
  9. POTASSIUM CHLORIDE [Concomitant]
  10. LIPITOR [Suspect]
     Indication: BLOOD CHOLESTEROL INCREASED
     Dosage: 20 MG (20 MG, 1 IN 1 D), ORAL
     Route: 048
  11. LOPID [Suspect]
     Indication: BLOOD CHOLESTEROL INCREASED
     Dosage: 600 MG (600 MG, 1 IN 1 D), ORAL
     Route: 048
  12. ALPRAZOLAM [Concomitant]

REACTIONS (9)
  - INTRACRANIAL ANEURYSM [None]
  - CONTUSION [None]
  - APPLICATION SITE VESICLES [None]
  - WEIGHT DECREASED [None]
  - SKIN DISCOLOURATION [None]
  - VOMITING [None]
  - NAUSEA [None]
  - DYSPEPSIA [None]
  - MEMORY IMPAIRMENT [None]
